FAERS Safety Report 7491254-6 (Version None)
Quarter: 2011Q2

REPORT INFORMATION
  Report Type: 
  Country: None (occurrence: None)
  Receive Date: 20110519
  Receipt Date: 20110510
  Transmission Date: 20111010
  Serious: Yes (Death, Hospitalization)
  Sender: FDA-Public Use
  Company Number: A0915128A

PATIENT
  Age: 70 Year
  Sex: Female
  Weight: 73.2 kg

DRUGS (3)
  1. PREDNISONE [Suspect]
     Indication: MULTIPLE MYELOMA
     Dosage: 100MG CYCLIC
     Route: 048
     Dates: start: 20101018, end: 20101028
  2. VELCADE [Suspect]
     Indication: MULTIPLE MYELOMA
     Dosage: 2.3MG TWO TIMES PER WEEK
     Route: 042
     Dates: start: 20101018, end: 20101028
  3. MELPHALAN HYDROCHLORIDE [Suspect]
     Indication: MULTIPLE MYELOMA
     Dosage: 8MG CYCLIC
     Route: 048
     Dates: start: 20101018, end: 20101028

REACTIONS (12)
  - GASTROINTESTINAL HAEMORRHAGE [None]
  - DEVICE RELATED SEPSIS [None]
  - INTERVERTEBRAL DISC DISORDER [None]
  - STAPHYLOCOCCAL SEPSIS [None]
  - HAEMORRHOIDAL HAEMORRHAGE [None]
  - RECTAL HAEMORRHAGE [None]
  - LETHARGY [None]
  - HYPOTENSION [None]
  - SEPTIC SHOCK [None]
  - FATIGUE [None]
  - MENTAL STATUS CHANGES [None]
  - RESPIRATORY FAILURE [None]
